FAERS Safety Report 9193406 (Version 2)
Quarter: 2013Q2

REPORT INFORMATION
  Report Type: Spontaneous
  Country: BR (occurrence: BR)
  Receive Date: 20130327
  Receipt Date: 20130422
  Transmission Date: 20140414
  Serious: Yes (Other)
  Sender: FDA-Public Use
  Company Number: BR-PFIZER INC-2009281093

PATIENT
  Age: 56 Year
  Sex: Female
  Weight: 59 kg

DRUGS (16)
  1. CHAMPIX [Suspect]
     Indication: SMOKING CESSATION THERAPY
     Dosage: UNK, FREE SAMPLE
     Route: 048
     Dates: start: 20090407, end: 20090421
  2. CHAMPIX [Suspect]
     Dosage: 1 TABLET, 2X/DAY
     Route: 048
     Dates: start: 2009
  3. BENICAR [Concomitant]
     Indication: BLOOD PRESSURE INCREASED
     Dosage: 40/25MG, 3 TABLETS IN THE MORNING
     Dates: start: 2005
  4. LIPANOR [Concomitant]
     Dosage: UNK
  5. AMARYL [Concomitant]
     Dosage: UNK
     Dates: start: 2005
  6. GLIFAGE [Concomitant]
     Dosage: UNK
     Dates: start: 2005
  7. BENERVA [Concomitant]
     Dosage: UNK
     Dates: start: 200808
  8. ASPIRINA PREVENT [Concomitant]
     Indication: ANTICOAGULANT THERAPY
     Dosage: 100MG, 1 TABLET AT LUNCH
  9. DOMPERIX [Concomitant]
     Indication: DYSPEPSIA
     Dosage: 10 MG, 3 TABLETS A DAY (MORNING, AFTERNOON AND EVENING)
  10. GABAPENTIN [Concomitant]
     Indication: DIABETIC NEUROPATHY
     Dosage: 300MG, 2 TABLETS A DAY (1 IN THE MORNING BEFORE BREAKFAST AND 1 IN THE EVENING BEFORE DINNER)
  11. GALVUS [Concomitant]
     Indication: HYPERGLYCAEMIA
     Dosage: 50/100MG, 2 TABLETS A DAY 1 MORNING BEFORE BREAKFAST AND 1 EVENING BEFORE DINNER)
  12. OMEPRAZOL [Concomitant]
     Indication: GASTRITIS
     Dosage: 40 MG, 2 TABLETS A DAY, 1 MORNING AND 1 EVENING
  13. PRESERTAN [Concomitant]
     Indication: BLOOD PRESSURE INCREASED
     Dosage: 2.5 MG, 1 TABLET AT NIGHT
  14. SIMVASCOR [Concomitant]
     Indication: BLOOD CHOLESTEROL
     Dosage: 40 MG, 1 TABLET IN THE MORNING
  15. SUCRALFILM [Concomitant]
     Indication: OESOPHAGEAL DISORDER
     Dosage: 2/10MG, 1 TABLET EVERY 12HRS
     Route: 048
  16. NISULID [Concomitant]
     Dosage: UNK
     Dates: start: 20090915

REACTIONS (5)
  - Oesophagitis [Not Recovered/Not Resolved]
  - Dysphonia [Not Recovered/Not Resolved]
  - Malaise [Not Recovered/Not Resolved]
  - Crying [Not Recovered/Not Resolved]
  - Therapeutic response unexpected [Unknown]
